FAERS Safety Report 6564221-4 (Version None)
Quarter: 2010Q1

REPORT INFORMATION
  Report Type: 
  Country: None (occurrence: None)
  Receive Date: 20100201
  Receipt Date: 20100126
  Transmission Date: 20100710
  Serious: Yes (Other)
  Sender: FDA-Public Use
  Company Number: US-BIOGENIDEC-2010BI000643

PATIENT
  Age: 52 Year
  Sex: Female

DRUGS (1)
  1. TYSABRI [Suspect]
     Indication: MULTIPLE SCLEROSIS
     Route: 042
     Dates: start: 20090116, end: 20091218

REACTIONS (6)
  - CHILLS [None]
  - COGNITIVE DISORDER [None]
  - LUNG DISORDER [None]
  - RENAL VEIN THROMBOSIS [None]
  - THROMBOSIS [None]
  - THYROID DISORDER [None]
